FAERS Safety Report 6734933-8 (Version None)
Quarter: 2010Q2

REPORT INFORMATION
  Report Type: 
  Country: None (occurrence: None)
  Receive Date: 20100521
  Receipt Date: 20100517
  Transmission Date: 20101027
  Serious: Yes (Hospitalization, Other)
  Sender: FDA-Public Use
  Company Number: US-ASTRAZENECA-2007UW15794

PATIENT
  Age: 410 Month
  Sex: Female
  Weight: 97.5 kg

DRUGS (51)
  1. SEROQUEL [Suspect]
     Indication: SLEEP DISORDER
     Dosage: 100-1000 MG
     Route: 048
     Dates: start: 19990101
  2. SEROQUEL [Suspect]
     Indication: SCHIZOPHRENIA
     Dosage: 100-1000 MG
     Route: 048
     Dates: start: 19990101
  3. SEROQUEL [Suspect]
     Indication: BIPOLAR DISORDER
     Dosage: 100-1000 MG
     Route: 048
     Dates: start: 19990101
  4. SEROQUEL [Suspect]
     Indication: DEPRESSION
     Dosage: 100-1000 MG
     Route: 048
     Dates: start: 19990101
  5. SEROQUEL [Suspect]
     Route: 048
     Dates: start: 20040511
  6. SEROQUEL [Suspect]
     Route: 048
     Dates: start: 20040511
  7. SEROQUEL [Suspect]
     Route: 048
     Dates: start: 20040511
  8. SEROQUEL [Suspect]
     Route: 048
     Dates: start: 20040511
  9. SEROQUEL [Suspect]
     Dosage: 400-600MG
     Route: 048
     Dates: start: 20040823
  10. SEROQUEL [Suspect]
     Dosage: 400-600MG
     Route: 048
     Dates: start: 20040823
  11. SEROQUEL [Suspect]
     Dosage: 400-600MG
     Route: 048
     Dates: start: 20040823
  12. SEROQUEL [Suspect]
     Dosage: 400-600MG
     Route: 048
     Dates: start: 20040823
  13. SEROQUEL [Suspect]
     Route: 048
     Dates: start: 20041226
  14. SEROQUEL [Suspect]
     Route: 048
     Dates: start: 20041226
  15. SEROQUEL [Suspect]
     Route: 048
     Dates: start: 20041226
  16. SEROQUEL [Suspect]
     Route: 048
     Dates: start: 20041226
  17. SEROQUEL [Suspect]
     Dosage: 200-800MG
     Route: 048
     Dates: start: 20060823
  18. SEROQUEL [Suspect]
     Dosage: 200-800MG
     Route: 048
     Dates: start: 20060823
  19. SEROQUEL [Suspect]
     Dosage: 200-800MG
     Route: 048
     Dates: start: 20060823
  20. SEROQUEL [Suspect]
     Dosage: 200-800MG
     Route: 048
     Dates: start: 20060823
  21. SEROQUEL [Suspect]
     Route: 048
     Dates: start: 20080101
  22. SEROQUEL [Suspect]
     Route: 048
     Dates: start: 20080101
  23. SEROQUEL [Suspect]
     Route: 048
     Dates: start: 20080101
  24. SEROQUEL [Suspect]
     Route: 048
     Dates: start: 20080101
  25. SEROQUEL [Suspect]
     Dosage: 200 MG 4 T NIGHT
     Route: 048
     Dates: start: 20090801
  26. SEROQUEL [Suspect]
     Dosage: 200 MG 4 T NIGHT
     Route: 048
     Dates: start: 20090801
  27. SEROQUEL [Suspect]
     Dosage: 200 MG 4 T NIGHT
     Route: 048
     Dates: start: 20090801
  28. SEROQUEL [Suspect]
     Dosage: 200 MG 4 T NIGHT
     Route: 048
     Dates: start: 20090801
  29. SEROQUEL [Suspect]
     Route: 048
     Dates: start: 20090801
  30. SEROQUEL [Suspect]
     Route: 048
     Dates: start: 20090801
  31. SEROQUEL [Suspect]
     Route: 048
     Dates: start: 20090801
  32. SEROQUEL [Suspect]
     Route: 048
     Dates: start: 20090801
  33. SEROQUEL [Suspect]
     Route: 048
     Dates: start: 20100301
  34. SEROQUEL [Suspect]
     Route: 048
     Dates: start: 20100301
  35. SEROQUEL [Suspect]
     Route: 048
     Dates: start: 20100301
  36. SEROQUEL [Suspect]
     Route: 048
     Dates: start: 20100301
  37. SEROQUEL [Suspect]
     Dosage: 400 MG 2 HS
     Route: 048
     Dates: start: 20100301
  38. SEROQUEL [Suspect]
     Dosage: 400 MG 2 HS
     Route: 048
     Dates: start: 20100301
  39. SEROQUEL [Suspect]
     Dosage: 400 MG 2 HS
     Route: 048
     Dates: start: 20100301
  40. SEROQUEL [Suspect]
     Dosage: 400 MG 2 HS
     Route: 048
     Dates: start: 20100301
  41. DEPAKOTE [Concomitant]
     Indication: SCHIZOPHRENIA
     Dosage: 1-1000 MG/DAY
     Route: 048
     Dates: start: 19970101
  42. BUSPAR [Concomitant]
     Dates: start: 20010220
  43. KLONOPIN [Concomitant]
     Indication: SCHIZOPHRENIA
     Dosage: 1-2 MG
     Dates: start: 19970101
  44. LOVASTATIN [Concomitant]
     Dosage: 40 MG,2 TABLETS
     Dates: start: 20090416
  45. BENAZEPRIL HYDROCHLORIDE [Concomitant]
     Dosage: 5-20 MG
     Route: 048
     Dates: start: 20090416
  46. TEMAZEPAM [Concomitant]
     Dates: start: 20080815
  47. EFFEXOR [Concomitant]
     Dates: start: 20010419
  48. ABILIFY [Concomitant]
     Dates: start: 20060801
  49. NAVANE [Concomitant]
     Dates: start: 19940101
  50. RISPERDAL [Concomitant]
     Indication: SCHIZOPHRENIA
     Route: 048
     Dates: start: 20040511
  51. REGULAR INSULIN [Concomitant]
     Indication: DIABETES MELLITUS
     Dosage: 2-30 UNITS
     Dates: start: 20040511

REACTIONS (7)
  - BLOOD CHOLESTEROL INCREASED [None]
  - DIABETIC COMA [None]
  - DIABETIC KETOACIDOSIS [None]
  - DIABETIC NEUROPATHY [None]
  - PANCREATITIS [None]
  - TYPE 1 DIABETES MELLITUS [None]
  - TYPE 2 DIABETES MELLITUS [None]
